FAERS Safety Report 9377696 (Version 1)
Quarter: 2013Q3

REPORT INFORMATION
  Report Type: Spontaneous
  Country: US (occurrence: US)
  Receive Date: 20130701
  Receipt Date: 20130701
  Transmission Date: 20140515
  Serious: No
  Sender: FDA-Public Use
  Company Number: US-COVIDIEN/TYCO HEALTHCARE/MALLINCKRODT-T201301807

PATIENT
  Age: 10 Year
  Sex: Female

DRUGS (2)
  1. METHYLPHENIDATE HYDROCHLORIDE EXTENDED RELEASE TABLETS [Suspect]
     Indication: ABNORMAL BEHAVIOUR
     Dosage: 36 MG, QD
     Route: 048
     Dates: start: 20130424, end: 20130424
  2. CONCERTA [Concomitant]
     Indication: ABNORMAL BEHAVIOUR
     Dosage: UNK

REACTIONS (3)
  - Psychomotor hyperactivity [Recovering/Resolving]
  - Drug effect decreased [Unknown]
  - Disturbance in attention [Recovering/Resolving]
